FAERS Safety Report 24689153 (Version 1)
Quarter: 2024Q4

REPORT INFORMATION
  Report Type: Spontaneous
  Country: KR (occurrence: KR)
  Receive Date: 20241203
  Receipt Date: 20241203
  Transmission Date: 20250114
  Serious: Yes (Other)
  Sender: SANOFI AVENTIS
  Company Number: KR-ASTELLAS-2024-AER-022397

PATIENT
  Sex: Female
  Weight: 47 kg

DRUGS (1)
  1. HARNAL [Suspect]
     Active Substance: TAMSULOSIN HYDROCHLORIDE
     Indication: Urinary tract disorder
     Dosage: 1 DF QD(ORODISPERSIBLE TABLET)
     Route: 065
     Dates: start: 20220601, end: 20220616

REACTIONS (3)
  - Syncope [Recovered/Resolved]
  - Product use issue [Unknown]
  - Off label use [Unknown]

NARRATIVE: CASE EVENT DATE: 20220601
